FAERS Safety Report 16874662 (Version 1)
Quarter: 2019Q4

REPORT INFORMATION
  Report Type: Spontaneous
  Country: US (occurrence: US)
  Receive Date: 20191001
  Receipt Date: 20191001
  Transmission Date: 20200122
  Serious: Yes (Hospitalization)
  Sender: FDA-Public Use
  Company Number: US-TEVA-2019-US-1115588

PATIENT
  Age: 17 Year
  Sex: Male

DRUGS (5)
  1. OLANZAPINE. [Suspect]
     Active Substance: OLANZAPINE
     Indication: AFFECTIVE DISORDER
     Dosage: REGULAR THERAPY DOSE NOT MENTIONED
     Route: 048
  2. GUANFACINE. [Suspect]
     Active Substance: GUANFACINE
     Indication: SUICIDE ATTEMPT
     Dosage: REGULAR THERAPY DOSE NOT MENTIONED
     Route: 048
  3. GUANFACINE. [Suspect]
     Active Substance: GUANFACINE
     Indication: ATTENTION DEFICIT/HYPERACTIVITY DISORDER
     Dosage: INTENTIONALLY INGESTED 63 GUANFACINE EXTENDED-RELEASE TABLETS
     Route: 048
  4. OLANZAPINE. [Suspect]
     Active Substance: OLANZAPINE
     Indication: BEHAVIOUR DISORDER
     Dosage: INTENTIONALLY INGESTED 68 OLANZAPINE TABLETS
     Route: 048
  5. OLANZAPINE. [Suspect]
     Active Substance: OLANZAPINE
     Indication: SUICIDE ATTEMPT

REACTIONS (14)
  - Agitation [Unknown]
  - Presyncope [Recovered/Resolved]
  - Sinus bradycardia [Recovered/Resolved]
  - Cardiac arrest [Recovering/Resolving]
  - Disorientation [Recovered/Resolved]
  - Orthostatic hypotension [Recovered/Resolved]
  - Sinus arrest [Recovered/Resolved]
  - Dysarthria [Unknown]
  - Mental status changes [Recovered/Resolved]
  - Suicide attempt [Unknown]
  - Respiratory depression [Unknown]
  - Hallucination [Unknown]
  - Intentional overdose [Unknown]
  - Presyncope [Unknown]
